FAERS Safety Report 8815219 (Version 2)
Quarter: 2012Q4

REPORT INFORMATION
  Report Type: 
  Country: US (occurrence: US)
  Receive Date: 20120928
  Receipt Date: 20121031
  Transmission Date: 20130627
  Serious: Yes (Hospitalization)
  Sender: FDA-Public Use
  Company Number: US-ASTRAZENECA-2012SE72964

PATIENT
  Age: 75 Year
  Sex: Female

DRUGS (1)
  1. SYMBICORT [Suspect]
     Indication: PNEUMONIA
     Dosage: 160/4.5 MCG 2 PUFFS BID
     Route: 055
     Dates: start: 2010

REACTIONS (2)
  - Herpes zoster [Unknown]
  - Off label use [Unknown]
